FAERS Safety Report 25333097 (Version 2)
Quarter: 2025Q2

REPORT INFORMATION
  Report Type: Spontaneous
  Country: US (occurrence: US)
  Receive Date: 20250519
  Receipt Date: 20250612
  Transmission Date: 20250716
  Serious: No
  Sender: SANOFI AVENTIS
  Company Number: US-SA-2025SA142724

PATIENT
  Age: 46 Year
  Sex: Female

DRUGS (3)
  1. DUPIXENT [Suspect]
     Active Substance: DUPILUMAB
     Indication: Asthma
     Dosage: 300 MG, QOW
     Route: 058
     Dates: start: 20250313
  2. LORATADINE [Concomitant]
     Active Substance: LORATADINE
  3. MONTELUKAST [Concomitant]
     Active Substance: MONTELUKAST

REACTIONS (3)
  - Injection site reaction [Unknown]
  - Impaired quality of life [Unknown]
  - Asthma [Unknown]

NARRATIVE: CASE EVENT DATE: 20250101
